FAERS Safety Report 15446163 (Version 1)
Quarter: 2018Q3

REPORT INFORMATION
  Report Type: Spontaneous
  Country: US (occurrence: US)
  Receive Date: 20180928
  Receipt Date: 20180928
  Transmission Date: 20181010
  Serious: No
  Sender: FDA-Public Use
  Company Number: US-AMGEN-USASP2018080249

PATIENT
  Age: 63 Year
  Sex: Female
  Weight: 37.19 kg

DRUGS (2)
  1. PROLIA [Suspect]
     Active Substance: DENOSUMAB
     Indication: OSTEOPOROSIS POSTMENOPAUSAL
     Dosage: 60 MG, Q6MO
     Route: 065
     Dates: start: 20161128
  2. PROLIA [Suspect]
     Active Substance: DENOSUMAB
     Dosage: DECREASE IN DOSE, Q6MO
     Route: 065
     Dates: start: 20180611

REACTIONS (4)
  - Arthralgia [Not Recovered/Not Resolved]
  - Dyspnoea [Recovered/Resolved]
  - Chest discomfort [Recovered/Resolved]
  - Bone pain [Not Recovered/Not Resolved]
